FAERS Safety Report 5596693-6 (Version None)
Quarter: 2008Q1

REPORT INFORMATION
  Report Type: 
  Country: None (occurrence: None)
  Receive Date: 20080118
  Receipt Date: 20080109
  Transmission Date: 20080703
  Serious: Yes (Death)
  Sender: FDA-Public Use
  Company Number: US-PFIZER INC-2008002943

PATIENT
  Age: 23 Year
  Sex: Female

DRUGS (4)
  1. GABAPENTIN [Suspect]
  2. HEROIN [Suspect]
  3. COCAINE [Suspect]
  4. CARISOPRODOL [Suspect]

REACTIONS (3)
  - CARDIAC ARREST [None]
  - DRUG ABUSE [None]
  - RESPIRATORY ARREST [None]
